FAERS Safety Report 18690304 (Version 2)
Quarter: 2021Q1

REPORT INFORMATION
  Report Type: Report from Study
  Country: US (occurrence: US)
  Receive Date: 20210101
  Receipt Date: 20210120
  Transmission Date: 20210419
  Serious: Yes (Hospitalization)
  Sender: FDA-Public Use
  Company Number: US-ROCHE-2741853

PATIENT
  Age: 54 Year
  Sex: Male
  Weight: 69.4 kg

DRUGS (11)
  1. IBRUTINIB [Suspect]
     Active Substance: IBRUTINIB
     Indication: B-CELL LYMPHOMA
     Dosage: ADMINISTERED ORALLY, DAYS 1?14, AT A DOSE OF 560 MG; EVERY 21 DAYS FOR UP TO 6 CYCLES (AS PER PROTOC
     Route: 048
     Dates: start: 20200904, end: 20201225
  2. NPH INSULIN [Concomitant]
     Active Substance: INSULIN BEEF
  3. ENALAPRIL [Concomitant]
     Active Substance: ENALAPRIL
  4. PREDNISONE. [Suspect]
     Active Substance: PREDNISONE
     Indication: B-CELL LYMPHOMA
     Dosage: ADMINISTERED ORALLY, DAYS 1?7, AT A DOSE OF 100 MG; EVERY 21 DAYS FOR UP TO 6 CYCLES (AS PER PROTOCO
     Route: 048
     Dates: start: 20200904, end: 20201218
  5. METOPROLOL. [Concomitant]
     Active Substance: METOPROLOL
  6. VENETOCLAX. [Suspect]
     Active Substance: VENETOCLAX
     Indication: B-CELL LYMPHOMA
     Dosage: ADMINISTERED ORALLY, DAYS 2?14, AT VARYING DOSES OF 200?800 MG (BASED UPON ASSIGNED DOSE LEVEL); EVE
     Route: 048
     Dates: start: 20200905, end: 20201225
  7. METFORMIN [Concomitant]
     Active Substance: METFORMIN HYDROCHLORIDE
  8. ASPIRIN. [Concomitant]
     Active Substance: ASPIRIN
  9. ATORVASTATIN [Concomitant]
     Active Substance: ATORVASTATIN
  10. LENALIDOMIDE [Suspect]
     Active Substance: LENALIDOMIDE
     Indication: B-CELL LYMPHOMA
     Dosage: ADMINISTERED ORALLY, DAYS 1?15, AT A DOSE OF 15 MG; EVERY 21 DAYS FOR UP TO 6 CYCLES (AS PER PROTOCO
     Route: 048
     Dates: start: 20200904, end: 20201225
  11. OBINUTUZUMAB. [Suspect]
     Active Substance: OBINUTUZUMAB
     Indication: B-CELL LYMPHOMA
     Dosage: ADMINISTERED INTRAVENOUSLY, DAYS 1 AND 2, AT A DOSE OF 1000 MG; EVERY 21 DAYS FOR UP TO 6 CYCLES (AS
     Route: 042
     Dates: start: 20200904, end: 20201213

REACTIONS (2)
  - Diarrhoea [Unknown]
  - Fatigue [Unknown]

NARRATIVE: CASE EVENT DATE: 20201228
